FAERS Safety Report 5916747-1 (Version None)
Quarter: 2008Q4

REPORT INFORMATION
  Report Type: 
  Country: None (occurrence: None)
  Receive Date: 20081013
  Receipt Date: 20081007
  Transmission Date: 20090506
  Serious: Yes (Hospitalization)
  Sender: FDA-Public Use
  Company Number: IT-SANOFI-SYNTHELABO-A06200800612

PATIENT
  Sex: Male

DRUGS (1)
  1. FASTURTEC [Suspect]
     Indication: HYPERURICAEMIA
     Route: 042
     Dates: start: 20070827, end: 20070827

REACTIONS (6)
  - ERYTHEMA [None]
  - HYPOXIA [None]
  - LEUKOCYTOSIS [None]
  - PAIN [None]
  - PYREXIA [None]
  - RESPIRATORY ALKALOSIS [None]
